FAERS Safety Report 8299643-7 (Version None)
Quarter: 2012Q2

REPORT INFORMATION
  Report Type: 
  Country: None (occurrence: None)
  Receive Date: 20120419
  Receipt Date: 20120413
  Transmission Date: 20120825
  Serious: Yes (Hospitalization)
  Sender: FDA-Public Use
  Company Number: US-ELI_LILLY_AND_COMPANY-US201204005164

PATIENT
  Age: 81 Year
  Sex: Female

DRUGS (1)
  1. FORTEO [Suspect]
     Indication: OSTEOPOROSIS
     Dosage: 20 UG, UNK
     Dates: start: 20120201, end: 20120409

REACTIONS (5)
  - INTENTIONAL DRUG MISUSE [None]
  - RADIUS FRACTURE [None]
  - HEADACHE [None]
  - AMNESIA [None]
  - VERTIGO [None]
